FAERS Safety Report 11511586 (Version 1)
Quarter: 2015Q3

REPORT INFORMATION
  Report Type: Spontaneous
  Country: US (occurrence: US)
  Receive Date: 20150915
  Receipt Date: 20150915
  Transmission Date: 20151125
  Serious: Yes (Other)
  Sender: FDA-Public Use
  Company Number: US-TAKEDA-TPA2013A06930

PATIENT

DRUGS (4)
  1. REZULIN [Concomitant]
     Active Substance: TROGLITAZONE
     Dosage: DURATION: MID-1990S
  2. INSULIN [Concomitant]
     Active Substance: INSULIN NOS
     Indication: DIABETES MELLITUS
     Dosage: 70/30 24 AM; 14 PM, UNK
     Dates: start: 1993
  3. ACTOS [Suspect]
     Active Substance: PIOGLITAZONE HYDROCHLORIDE
     Indication: TYPE 2 DIABETES MELLITUS
     Dosage: 45 MG, UNK
     Route: 048
     Dates: start: 2000, end: 2007
  4. HUMULIN/NOVOLIN [Concomitant]
     Indication: DIABETES MELLITUS
     Dosage: 70/30 24 AM; 14 PM, UNK
     Dates: start: 1993

REACTIONS (1)
  - Bladder cancer [Not Recovered/Not Resolved]

NARRATIVE: CASE EVENT DATE: 200901
